FAERS Safety Report 15436037 (Version 1)
Quarter: 2018Q3

REPORT INFORMATION
  Report Type: Spontaneous
  Country: US (occurrence: US)
  Receive Date: 20180927
  Receipt Date: 20180927
  Transmission Date: 20181010
  Serious: No
  Sender: FDA-Public Use
  Company Number: US-PFIZER INC-2018384898

PATIENT
  Age: 64 Year
  Weight: 140.4 kg

DRUGS (1)
  1. HEPARIN SODIUM. [Suspect]
     Active Substance: HEPARIN SODIUM
     Dosage: UNK [DISP #: 2/MONTH]

REACTIONS (2)
  - Drug hypersensitivity [Unknown]
  - Contraindicated drug prescribed [Unknown]
